FAERS Safety Report 8429046 (Version 2)
Quarter: 2013Q1

REPORT INFORMATION
  Report Type: Spontaneous
  Country: US (occurrence: US)
  Receive Date: 20120227
  Receipt Date: 20130226
  Transmission Date: 20140127
  Serious: No
  Sender: FDA-Public Use
  Company Number: US-PFIZER INC-2012047061

PATIENT
  Age: 28 Year
  Sex: Female

DRUGS (18)
  1. PRISTIQ [Suspect]
     Dosage: 100 MG, 1X/DAY
     Route: 048
  2. AMBIEN [Concomitant]
     Dosage: 10 MG, 1 TABLET PER NIGHT
  3. TOPAMAX [Concomitant]
     Dosage: 100 MG, 1X/DAY
  4. LOESTRIN FE [Concomitant]
     Dosage: 1 DAILY AT NIGHT
  5. NALTREXONE [Concomitant]
     Dosage: 50 MG, 1/2 TABLET DAILY
  6. ATIVAN [Concomitant]
     Dosage: 2 MG, 2X/DAY
  7. LIDODERM [Concomitant]
     Dosage: 5 %, UNK
  8. PROCTOSOL-HC [Concomitant]
     Dosage: 2.5 %, UNK
  9. NYSTATIN [Concomitant]
     Dosage: UNK
  10. PROMETHAZINE [Concomitant]
     Dosage: 25 MG, 1 EVERY 6 HR
  11. NEOSPORIN OINTMENT [Concomitant]
     Indication: ANALGESIC THERAPY
     Dosage: UNK
  12. MELATONIN [Concomitant]
     Dosage: 10 MG, 1 TABLET PER NIGHT
  13. B12 [Concomitant]
     Dosage: 5000 MG, AS NEEDED
  14. IBUPROFEN [Concomitant]
     Dosage: 800 MG (1 TABLET), AS NEEDED
  15. AZITHROMYCIN [Concomitant]
     Indication: ANTIBIOTIC THERAPY
     Dosage: 5 DAILY DOSES AS NEEDED
  16. VENTOLIN [Concomitant]
     Dosage: 90 MCG 2 PUMPS AS NEEDED
  17. KETAMINE [Concomitant]
     Dosage: 30 MG/ML, AS NEEDED
  18. ALLERGY RELIEF [Concomitant]
     Dosage: 25 MG, AS NEEDED

REACTIONS (3)
  - Limb injury [Unknown]
  - Complex regional pain syndrome [Unknown]
  - Depression [Unknown]
